FAERS Safety Report 13340708 (Version 1)
Quarter: 2017Q1

REPORT INFORMATION
  Report Type: Spontaneous
  Country: US (occurrence: US)
  Receive Date: 20170315
  Receipt Date: 20170315
  Transmission Date: 20170428
  Serious: Yes (Hospitalization)
  Sender: FDA-Public Use
  Company Number: None

PATIENT
  Sex: Male
  Weight: 77.6 kg

DRUGS (2)
  1. ALVIMOPAN [Suspect]
     Active Substance: ALVIMOPAN
     Indication: POSTOPERATIVE ILEUS
     Route: 048
     Dates: start: 20161229, end: 20170104
  2. ALVIMOPAN [Suspect]
     Active Substance: ALVIMOPAN
     Indication: PROPHYLAXIS
     Route: 048
     Dates: start: 20161229, end: 20170104

REACTIONS (1)
  - Acute myocardial infarction [None]

NARRATIVE: CASE EVENT DATE: 20170103
